FAERS Safety Report 6037510-X (Version None)
Quarter: 2009Q1

REPORT INFORMATION
  Report Type: 
  Country: None (occurrence: None)
  Receive Date: 20090113
  Receipt Date: 20081215
  Transmission Date: 20090719
  Serious: Yes (Other)
  Sender: FDA-Public Use
  Company Number: 2008-059

PATIENT

DRUGS (1)
  1. PHYTONADIONE [Suspect]
     Indication: HAEMORRHAGIC DISORDER
     Dosage: SUBCUTANEOUS OR INTRAMUSCULAR ROUTE
     Route: 057

REACTIONS (2)
  - FOREIGN BODY TRAUMA [None]
  - MEDICAL DEVICE COMPLICATION [None]
